FAERS Safety Report 17403498 (Version 2)
Quarter: 2020Q1

REPORT INFORMATION
  Report Type: Spontaneous
  Country: US (occurrence: US)
  Receive Date: 20200211
  Receipt Date: 20200228
  Transmission Date: 20200409
  Serious: No
  Sender: FDA-Public Use
  Company Number: US-ACTELION-A-US2020-201747

PATIENT
  Age: 70 Year
  Sex: Male
  Weight: 121.09 kg

DRUGS (8)
  1. OMEPRAZOLE. [Concomitant]
     Active Substance: OMEPRAZOLE
     Dosage: 20 MG, QD
     Dates: start: 2009
  2. MULTIVITAMIN [Concomitant]
     Active Substance: VITAMINS
     Dosage: UNK, QD
  3. OMEGA 3 [Concomitant]
     Active Substance: OMEGA-3 FATTY ACIDS
     Dosage: UNK, QD
  4. BUMETANIDE. [Concomitant]
     Active Substance: BUMETANIDE
     Dosage: 1 MG, QD
  5. OPSUMIT [Suspect]
     Active Substance: MACITENTAN
     Indication: PULMONARY ARTERIAL HYPERTENSION
     Dosage: 10 MG, QD
     Route: 048
     Dates: start: 20200202, end: 20200204
  6. TADALAFIL. [Concomitant]
     Active Substance: TADALAFIL
     Dosage: 20 MG, QD
     Route: 065
     Dates: start: 20200203, end: 20200204
  7. OXYGEN. [Concomitant]
     Active Substance: OXYGEN
  8. IRON [Concomitant]
     Active Substance: IRON
     Dosage: 65 MG, QD

REACTIONS (13)
  - Pain [Unknown]
  - Limb discomfort [Unknown]
  - Oedema peripheral [Recovering/Resolving]
  - Thirst [Unknown]
  - Fatigue [Unknown]
  - Flushing [Recovered/Resolved]
  - Liver disorder [Recovered/Resolved]
  - Chest pain [Unknown]
  - Dyspnoea [Recovering/Resolving]
  - Pain in extremity [Unknown]
  - Peripheral swelling [Not Recovered/Not Resolved]
  - Drug hypersensitivity [Unknown]
  - Gait inability [Recovered/Resolved]

NARRATIVE: CASE EVENT DATE: 20200204
